FAERS Safety Report 6952724-X (Version None)
Quarter: 2010Q3

REPORT INFORMATION
  Report Type: 
  Country: None (occurrence: None)
  Receive Date: 20100829
  Receipt Date: 20100511
  Transmission Date: 20110219
  Serious: No
  Sender: FDA-Public Use
  Company Number: US-ABBOTT-10P-163-0645062-00

PATIENT
  Sex: Male
  Weight: 89.892 kg

DRUGS (16)
  1. NIASPAN [Suspect]
     Indication: BLOOD CHOLESTEROL INCREASED
     Dates: start: 20100501
  2. ADVAIR DISKUS 100/50 [Concomitant]
     Indication: ASTHMA
  3. ALBUTEROL SULFATE [Concomitant]
     Indication: ASTHMA
  4. ASPIRIN [Concomitant]
     Indication: PRODUCT USED FOR UNKNOWN INDICATION
  5. CRESTOR [Concomitant]
     Indication: HYPERLIPIDAEMIA
  6. FISH OIL [Concomitant]
     Indication: PRODUCT USED FOR UNKNOWN INDICATION
  7. BENAZEPRIL HYDROCHLORIDE [Concomitant]
     Indication: HYPERTENSION
  8. AMLODIPINE [Concomitant]
     Indication: HYPERTENSION
  9. METFORMIN [Concomitant]
     Indication: DIABETES MELLITUS
  10. NASACORT AQ [Concomitant]
     Indication: SINUS DISORDER
  11. PLAVIX [Concomitant]
     Indication: CORONARY ARTERIAL STENT INSERTION
  12. PLAVIX [Concomitant]
     Indication: MYOCARDIAL INFARCTION
  13. PROTONIX [Concomitant]
     Indication: PRODUCT USED FOR UNKNOWN INDICATION
  14. SINGULAIR [Concomitant]
     Indication: HYPERSENSITIVITY
  15. TRICOR [Concomitant]
     Indication: HYPERLIPIDAEMIA
  16. ZOLOFT [Concomitant]
     Indication: ANXIETY

REACTIONS (5)
  - JOINT SWELLING [None]
  - OEDEMA PERIPHERAL [None]
  - OVERDOSE [None]
  - RASH PUSTULAR [None]
  - RASH VESICULAR [None]
